FAERS Safety Report 8883668 (Version 1)
Quarter: 2012Q4

REPORT INFORMATION
  Report Type: 
  Country: IT (occurrence: IT)
  Receive Date: 20121102
  Receipt Date: 20121102
  Transmission Date: 20130627
  Serious: Yes (Hospitalization)
  Sender: FDA-Public Use
  Company Number: IT-ELI_LILLY_AND_COMPANY-IT201210007203

PATIENT
  Age: 78 Year
  Sex: Female

DRUGS (5)
  1. HUMALOG LISPRO [Suspect]
     Indication: DIABETES MELLITUS
     Dosage: 16 IU, qd
     Route: 058
     Dates: start: 20121002, end: 20121008
  2. GLIBENCLAMIDE [Concomitant]
     Dosage: 15 mg, UNK
     Route: 048
  3. METFORAL [Concomitant]
     Dosage: 1000 mg, UNK
  4. CARDURA [Concomitant]
     Dosage: 4 mg, UNK
     Route: 048
  5. LASIX [Concomitant]
     Dosage: 25 mg, UNK
     Route: 048

REACTIONS (2)
  - Dysarthria [Recovered/Resolved]
  - Hypoglycaemia [Recovered/Resolved]
